FAERS Safety Report 21667353 (Version 2)
Quarter: 2022Q4

REPORT INFORMATION
  Report Type: Spontaneous
  Country: US (occurrence: US)
  Receive Date: 20221201
  Receipt Date: 20221216
  Transmission Date: 20230113
  Serious: Yes (Other)
  Sender: FDA-Public Use
  Company Number: US-TEVA-2022-US-2830419

PATIENT
  Age: 61 Year
  Sex: Female

DRUGS (6)
  1. PREDNISONE [Suspect]
     Active Substance: PREDNISONE
     Indication: Immune thrombocytopenia
     Route: 065
     Dates: start: 2020
  2. ELTROMBOPAG [Suspect]
     Active Substance: ELTROMBOPAG
     Indication: Immune thrombocytopenia
     Dosage: 25 MILLIGRAM DAILY; INITIAL DOSE NOT STATED; AT THE TIME OF THE VISIT HER DOSE WAS 25 MG/DAY, WHICH
     Route: 048
     Dates: start: 20200317
  3. ELTROMBOPAG [Suspect]
     Active Substance: ELTROMBOPAG
     Dosage: 50 MILLIGRAM DAILY;
     Route: 048
     Dates: end: 2021
  4. FOSTAMATINIB [Suspect]
     Active Substance: FOSTAMATINIB
     Indication: Immune thrombocytopenia
     Dosage: 300 MILLIGRAM DAILY; ADDITIONAL INFO: ONGOING AT THE TIME OF REPORTING
     Route: 048
     Dates: start: 2020
  5. AVATROMBOPAG [Concomitant]
     Active Substance: AVATROMBOPAG
     Indication: Immune thrombocytopenia
     Dosage: EVERY OTHER DAY , 20 MG
     Route: 065
     Dates: start: 2020
  6. AVATROMBOPAG [Concomitant]
     Active Substance: AVATROMBOPAG
     Dosage: 20 MILLIGRAM DAILY;
     Route: 065

REACTIONS (3)
  - Drug ineffective [Unknown]
  - Diarrhoea [Recovering/Resolving]
  - Liver function test abnormal [Unknown]

NARRATIVE: CASE EVENT DATE: 20200101
